FAERS Safety Report 10267394 (Version 2)
Quarter: 2014Q4

REPORT INFORMATION
  Report Type: Spontaneous
  Country: GB (occurrence: GB)
  Receive Date: 20140630
  Receipt Date: 20141212
  Transmission Date: 20150528
  Serious: Yes (Disabling, Other)
  Sender: FDA-Public Use
  Company Number: GB-TEVA-490107ISR

PATIENT
  Age: 61 Year
  Sex: Female
  Weight: 59.41 kg

DRUGS (6)
  1. SIMVASTATIN. [Suspect]
     Active Substance: SIMVASTATIN
     Indication: HYPERCHOLESTEROLAEMIA
     Route: 048
  2. ZOPICLONE [Concomitant]
     Active Substance: ZOPICLONE
  3. GABAPENTIN. [Concomitant]
     Active Substance: GABAPENTIN
  4. MORPHINE SULPHATE [Concomitant]
     Active Substance: MORPHINE SULFATE
  5. SIMVASTATIN. [Suspect]
     Active Substance: SIMVASTATIN
     Indication: HYPERCHOLESTEROLAEMIA
     Route: 048
  6. ADCAL [Concomitant]

REACTIONS (1)
  - Autonomic nervous system imbalance [Not Recovered/Not Resolved]

NARRATIVE: CASE EVENT DATE: 2010
